FAERS Safety Report 15058695 (Version 2)
Quarter: 2018Q3

REPORT INFORMATION
  Report Type: Spontaneous
  Country: ES (occurrence: ES)
  Receive Date: 20180625
  Receipt Date: 20180705
  Transmission Date: 20181010
  Serious: Yes (Disabling, Other)
  Sender: FDA-Public Use
  Company Number: ES-BAYER-2018-116677

PATIENT
  Age: 37 Year
  Sex: Male

DRUGS (2)
  1. CIPROFLOXACIN. [Suspect]
     Active Substance: CIPROFLOXACIN
     Indication: PROSTATITIS
  2. CIPROFLOXACIN. [Suspect]
     Active Substance: CIPROFLOXACIN
     Indication: MALAISE
     Dosage: SEVEN TABLETS
     Dates: start: 2016

REACTIONS (29)
  - Fatigue [Not Recovered/Not Resolved]
  - Amnesia [Not Recovered/Not Resolved]
  - Pyrexia [Not Recovered/Not Resolved]
  - Brain injury [Not Recovered/Not Resolved]
  - Head discomfort [Unknown]
  - Eye pain [Unknown]
  - Musculoskeletal injury [Not Recovered/Not Resolved]
  - Depersonalisation/derealisation disorder [Not Recovered/Not Resolved]
  - Arrhythmia [Unknown]
  - Arthralgia [Not Recovered/Not Resolved]
  - Feeling abnormal [Not Recovered/Not Resolved]
  - Headache [Unknown]
  - Influenza like illness [Not Recovered/Not Resolved]
  - Gait disturbance [Unknown]
  - Swelling [Unknown]
  - Muscle twitching [Unknown]
  - Hangover [Not Recovered/Not Resolved]
  - Deafness unilateral [Not Recovered/Not Resolved]
  - Dyspepsia [Unknown]
  - Vitreous floaters [Unknown]
  - Memory impairment [Not Recovered/Not Resolved]
  - Palpitations [Unknown]
  - Oropharyngeal pain [Unknown]
  - Visual impairment [Unknown]
  - Rash generalised [Unknown]
  - Blepharospasm [Unknown]
  - Muscle atrophy [Unknown]
  - Toxicity to various agents [Not Recovered/Not Resolved]
  - Impaired work ability [Unknown]
